FAERS Safety Report 25550681 (Version 2)
Quarter: 2025Q3

REPORT INFORMATION
  Report Type: Spontaneous
  Country: US (occurrence: US)
  Receive Date: 20250714
  Receipt Date: 20250718
  Transmission Date: 20251021
  Serious: No
  Sender: PFIZER
  Company Number: US-PFIZER INC-202500140725

PATIENT
  Age: 72 Year
  Sex: Male

DRUGS (1)
  1. XELJANZ XR [Suspect]
     Active Substance: TOFACITINIB CITRATE
     Indication: Polyarthritis
     Dosage: 11 MG, 1 TABLET ONCE A DAY, 90 DAYS, 90 TABLET, REFILLS 1
     Route: 048

REACTIONS (4)
  - Musculoskeletal stiffness [Unknown]
  - Pain in extremity [Unknown]
  - Arthralgia [Unknown]
  - Back pain [Unknown]

NARRATIVE: CASE EVENT DATE: 20250709
